FAERS Safety Report 24468138 (Version 2)
Quarter: 2024Q4

REPORT INFORMATION
  Report Type: Spontaneous
  Country: IR (occurrence: IR)
  Receive Date: 20241018
  Receipt Date: 20241106
  Transmission Date: 20250115
  Serious: Yes (Death, Hospitalization, Other)
  Sender: BIOMARIN
  Company Number: IR-SA-2024SA297863

PATIENT

DRUGS (1)
  1. ALDURAZYME [Suspect]
     Active Substance: LARONIDASE
     Indication: Mucopolysaccharidosis I
     Dosage: 5 MG/KG, QW
     Route: 065
     Dates: start: 20130503

REACTIONS (2)
  - Respiratory failure [Fatal]
  - Lung disorder [Fatal]
